FAERS Safety Report 5365111-5 (Version None)
Quarter: 2007Q2

REPORT INFORMATION
  Report Type: 
  Country: None (occurrence: None)
  Receive Date: 20070530
  Receipt Date: 20070110
  Transmission Date: 20071010
  Serious: No
  Sender: FDA-Public Use
  Company Number: 2006PV015715

PATIENT
  Age: 76 Year
  Sex: Female
  Weight: 86.1834 kg

DRUGS (6)
  1. BYETTA [Suspect]
     Indication: DIABETES MELLITUS NON-INSULIN-DEPENDENT
     Dosage: 5 MCG;BID;SC, 5 MCG;BID;SC
     Route: 058
     Dates: start: 20060508, end: 20060523
  2. BYETTA [Suspect]
     Indication: DIABETES MELLITUS NON-INSULIN-DEPENDENT
     Dosage: 5 MCG;BID;SC, 5 MCG;BID;SC
     Route: 058
     Dates: start: 20060605
  3. BYETTA [Suspect]
     Dosage: 5 MCG;BID;SC, 10MCG;BID;SC
     Route: 058
     Dates: start: 20061201, end: 20061201
  4. BYETTA [Suspect]
     Dosage: 5 MCG;BID;SC, 10MCG;BID;SC
     Route: 058
     Dates: start: 20061201, end: 20061227
  5. ACTOS [Concomitant]
  6. PREVACID [Concomitant]

REACTIONS (3)
  - ABDOMINAL PAIN UPPER [None]
  - NAUSEA [None]
  - WEIGHT DECREASED [None]
